FAERS Safety Report 4883450-9 (Version None)
Quarter: 2006Q1

REPORT INFORMATION
  Report Type: 
  Country: None (occurrence: None)
  Receive Date: 20060118
  Receipt Date: 20050909
  Transmission Date: 20060701
  Serious: Yes (Hospitalization, Disabling)
  Sender: FDA-Public Use
  Company Number: US-MERCK-0509USA01679

PATIENT
  Age: 62 Year
  Sex: Female
  Weight: 108 kg

DRUGS (6)
  1. VIOXX [Suspect]
     Indication: RHEUMATOID ARTHRITIS
     Route: 048
     Dates: start: 20011211, end: 20011220
  2. VIOXX [Suspect]
     Route: 048
     Dates: start: 20011220, end: 20020114
  3. VIOXX [Suspect]
     Route: 048
     Dates: start: 20020114, end: 20040901
  4. SERZONE [Concomitant]
     Indication: DEPRESSION
     Route: 048
  5. NORVASC [Concomitant]
     Indication: HYPERTENSION
     Route: 048
     Dates: start: 20020101
  6. ZANTAC [Concomitant]
     Route: 048

REACTIONS (4)
  - CAROTID ARTERY STENOSIS [None]
  - CEREBROVASCULAR ACCIDENT [None]
  - DRUG INEFFECTIVE [None]
  - HYPERLIPIDAEMIA [None]
